FAERS Safety Report 18896361 (Version 2)
Quarter: 2021Q1

REPORT INFORMATION
  Report Type: Spontaneous
  Country: SI (occurrence: SI)
  Receive Date: 20210216
  Receipt Date: 20210218
  Transmission Date: 20210420
  Serious: Yes (Life-Threatening, Hospitalization)
  Sender: FDA-Public Use
  Company Number: SI-ABBVIE-21K-261-3776003-00

PATIENT
  Age: 74 Year
  Sex: Female
  Weight: 95 kg

DRUGS (7)
  1. NACOM [Concomitant]
     Active Substance: CARBIDOPA\LEVODOPA
     Indication: PRODUCT USED FOR UNKNOWN INDICATION
     Dosage: IN THE EVENING 11PM
     Route: 048
     Dates: start: 2019
  2. VALSADEN [Concomitant]
     Indication: PRODUCT USED FOR UNKNOWN INDICATION
     Dosage: 160/12.5/ IN THE MORNING
  3. ROLPRYNA [Concomitant]
     Active Substance: ROPINIROLE HYDROCHLORIDE
     Indication: PRODUCT USED FOR UNKNOWN INDICATION
     Route: 048
     Dates: start: 20171117
  4. DUODOPA [Suspect]
     Active Substance: CARBIDOPA\LEVODOPA
  5. ROLPRYNA SR [Concomitant]
     Active Substance: ROPINIROLE HYDROCHLORIDE
     Indication: PRODUCT USED FOR UNKNOWN INDICATION
     Dosage: IN THE MORNING
     Route: 048
  6. VALSACOR [Concomitant]
     Active Substance: VALSARTAN
     Indication: PRODUCT USED FOR UNKNOWN INDICATION
     Dosage: IN THE EVENING
     Route: 048
     Dates: start: 2012
  7. DUODOPA [Suspect]
     Active Substance: CARBIDOPA\LEVODOPA
     Indication: PRODUCT USED FOR UNKNOWN INDICATION
     Route: 050
     Dates: start: 201907

REACTIONS (3)
  - Pneumonia [Recovered/Resolved]
  - COVID-19 [Recovered/Resolved]
  - Pulmonary embolism [Recovered/Resolved]

NARRATIVE: CASE EVENT DATE: 20210117
